FAERS Safety Report 14643524 (Version 1)
Quarter: 2018Q1

REPORT INFORMATION
  Report Type: Spontaneous
  Country: AU (occurrence: AU)
  Receive Date: 20180315
  Receipt Date: 20180315
  Transmission Date: 20180509
  Serious: Yes (Other)
  Sender: FDA-Public Use
  Company Number: AU-TEVA-2018-AU-866670

PATIENT
  Sex: Male

DRUGS (1)
  1. MODAVIGIL [Suspect]
     Active Substance: MODAFINIL
     Route: 048

REACTIONS (1)
  - Paranoia [Recovered/Resolved]
